FAERS Safety Report 23675477 (Version 1)
Quarter: 2024Q1

REPORT INFORMATION
  Report Type: Spontaneous
  Country: CZ (occurrence: CZ)
  Receive Date: 20240327
  Receipt Date: 20240327
  Transmission Date: 20240409
  Serious: Yes (Other)
  Sender: FDA-Public Use
  Company Number: None

PATIENT
  Sex: Male
  Weight: 91 kg

DRUGS (2)
  1. RYBELSUS [Suspect]
     Active Substance: SEMAGLUTIDE
     Indication: Product used for unknown indication
     Dosage: 3 MG, QD (1-0-0)
     Route: 048
     Dates: start: 20240223, end: 20240228
  2. YLPIO [Concomitant]
     Indication: Product used for unknown indication
     Dosage: 1-0-0, 1DF CONTAINS 80MG/2,5MG
     Route: 048
     Dates: start: 20190101, end: 20240310

REACTIONS (3)
  - Visual field defect [Recovering/Resolving]
  - Abdominal pain upper [Recovering/Resolving]
  - Constipation [Recovering/Resolving]

NARRATIVE: CASE EVENT DATE: 20240223
